FAERS Safety Report 18715392 (Version 2)
Quarter: 2021Q2

REPORT INFORMATION
  Report Type: Spontaneous
  Country: US (occurrence: US)
  Receive Date: 20210108
  Receipt Date: 20210525
  Transmission Date: 20210717
  Serious: No
  Sender: FDA-Public Use
  Company Number: US-SA-2021SA002735

PATIENT
  Age: 51 Year
  Sex: Female

DRUGS (16)
  1. DUPIXENT [Suspect]
     Active Substance: DUPILUMAB
     Indication: ASTHMA
     Dosage: 600 MG, 1X
     Route: 058
     Dates: start: 202012, end: 202012
  2. ACYCLOVIR [ACICLOVIR] [Concomitant]
     Active Substance: ACYCLOVIR
  3. BUPROPION. [Concomitant]
     Active Substance: BUPROPION
  4. IPRATROPIUM BROMIDE. [Concomitant]
     Active Substance: IPRATROPIUM BROMIDE
  5. TRAZODONE [Concomitant]
     Active Substance: TRAZODONE HYDROCHLORIDE
  6. ALBUTEROL SULFATE. [Concomitant]
     Active Substance: ALBUTEROL SULFATE
  7. GABAPENTIN. [Concomitant]
     Active Substance: GABAPENTIN
  8. FLUOXETINE [Concomitant]
     Active Substance: FLUOXETINE HYDROCHLORIDE
  9. PREDNISONE. [Concomitant]
     Active Substance: PREDNISONE
  10. LEVOTHYROXINE SODIUM. [Concomitant]
     Active Substance: LEVOTHYROXINE SODIUM
  11. DUPIXENT [Suspect]
     Active Substance: DUPILUMAB
     Dosage: 300 MG, QOW
     Route: 058
  12. VERAPAMIL [Concomitant]
     Active Substance: VERAPAMIL HYDROCHLORIDE
  13. GLIPIZIDE. [Concomitant]
     Active Substance: GLIPIZIDE
  14. MODERNA COVID?19 VACCINE [Suspect]
     Active Substance: CX-024414
     Indication: IMMUNISATION
  15. EPINEPHRINE. [Concomitant]
     Active Substance: EPINEPHRINE
  16. OXYMORPHONE [Concomitant]
     Active Substance: OXYMORPHONE

REACTIONS (7)
  - Pain in extremity [Unknown]
  - Oxygen saturation decreased [Unknown]
  - Rash [Recovered/Resolved]
  - Bone swelling [Recovered/Resolved]
  - Intentional dose omission [Unknown]
  - Pain of skin [Unknown]
  - Product use issue [Unknown]

NARRATIVE: CASE EVENT DATE: 202012
